FAERS Safety Report 18472145 (Version 1)
Quarter: 2020Q4

REPORT INFORMATION
  Report Type: Spontaneous
  Country: CN (occurrence: CN)
  Receive Date: 20201106
  Receipt Date: 20201106
  Transmission Date: 20210114
  Serious: Yes (Other)
  Sender: FDA-Public Use
  Company Number: CN-LUPIN PHARMACEUTICALS INC.-2020-08336

PATIENT
  Age: 66 Year
  Sex: Male

DRUGS (12)
  1. METHYLPREDNISOLONE. [Suspect]
     Active Substance: METHYLPREDNISOLONE
     Indication: ANTIINFLAMMATORY THERAPY
     Dosage: 40 MILLIGRAM, QD
     Route: 042
     Dates: start: 202001
  2. LOPINAVIR/RITONAVIR [Concomitant]
     Active Substance: LOPINAVIR\RITONAVIR
     Indication: COVID-19 PNEUMONIA
     Dosage: 500 MILLIGRAM, BID
     Route: 048
     Dates: start: 202001
  3. SALBUTAMOL SULFATE [Concomitant]
     Active Substance: ALBUTEROL SULFATE
     Indication: COVID-19 PNEUMONIA
     Dosage: 5 MILLIGRAM, 6 HOURS
     Route: 055
     Dates: start: 202001
  4. METHYLPREDNISOLONE. [Suspect]
     Active Substance: METHYLPREDNISOLONE
     Dosage: 20 MILLIGRAM, BID
     Route: 042
     Dates: start: 2020
  5. CEFOPERAZONE + SULBACTAM [Concomitant]
     Active Substance: CEFOPERAZONE SODIUM\SULBACTAM
     Indication: COVID-19 PNEUMONIA
     Dosage: 3 GRAM, TID
     Route: 042
     Dates: start: 202001
  6. IPRATROPIUM BROMIDE. [Concomitant]
     Active Substance: IPRATROPIUM BROMIDE
     Indication: COVID-19 PNEUMONIA
     Dosage: 500 MICROGRAM
     Route: 055
     Dates: start: 202001
  7. MOXIFLOXACIN HYDROCHLORIDE. [Suspect]
     Active Substance: MOXIFLOXACIN HYDROCHLORIDE
     Indication: INFECTION PROPHYLAXIS
     Dosage: 400 MILLIGRAM, QD
     Route: 042
     Dates: start: 202001
  8. METHYLPREDNISOLONE. [Suspect]
     Active Substance: METHYLPREDNISOLONE
     Indication: COVID-19 PNEUMONIA
     Dosage: 80 MILLIGRAM, BID
     Route: 042
     Dates: start: 2020
  9. ARBIDOL [Concomitant]
     Active Substance: UMIFENOVIR
     Indication: COVID-19 PNEUMONIA
     Dosage: 200 MILLIGRAM, TID
     Route: 048
     Dates: start: 202001
  10. BUDESONIDE. [Suspect]
     Active Substance: BUDESONIDE
     Indication: COVID-19 PNEUMONIA
     Dosage: 1 MILLIGRAM, SUSPENSION
     Dates: start: 202001
  11. IMMUNOGLOBULINS NOS [Concomitant]
     Active Substance: IMMUNE GLOBULIN NOS
     Indication: COVID-19 PNEUMONIA
     Dosage: 20 GRAM, QD
     Route: 042
     Dates: start: 202001
  12. THYMOSIN ALPHA 1 [Concomitant]
     Active Substance: THYMALFASIN
     Indication: COVID-19 PNEUMONIA
     Dosage: 1.6 GRAM, QD
     Route: 065
     Dates: start: 202001

REACTIONS (1)
  - Off label use [Unknown]

NARRATIVE: CASE EVENT DATE: 202001
